FAERS Safety Report 11675011 (Version 4)
Quarter: 2016Q2

REPORT INFORMATION
  Report Type: Report from Study
  Country: FR (occurrence: FR)
  Receive Date: 20151028
  Receipt Date: 20160606
  Transmission Date: 20160815
  Serious: Yes (Hospitalization, Other)
  Sender: FDA-Public Use
  Company Number: FR-BAYER-2015-446921

PATIENT
  Age: 44 Year
  Sex: Male
  Weight: 69 kg

DRUGS (5)
  1. REGORAFENIB [Suspect]
     Active Substance: REGORAFENIB
     Indication: OSTEOSARCOMA METASTATIC
     Dosage: DAILY DOSE 160 MG
     Dates: end: 20160322
  2. REGORAFENIB [Suspect]
     Active Substance: REGORAFENIB
     Indication: OSTEOSARCOMA METASTATIC
     Dosage: 160 MG DAILY
     Route: 048
     Dates: start: 20150916, end: 20151016
  3. PLACEBO (16994) [Suspect]
     Active Substance: UNSPECIFIED INGREDIENT
     Dosage: 160 MG DAILY
     Route: 048
     Dates: start: 20150819, end: 20150908
  4. INNOHEP [Concomitant]
     Active Substance: TINZAPARIN SODIUM
  5. PARACETAMOL [Concomitant]
     Active Substance: ACETAMINOPHEN

REACTIONS (2)
  - Pneumothorax [Recovered/Resolved]
  - Pneumothorax [Recovered/Resolved with Sequelae]

NARRATIVE: CASE EVENT DATE: 20151012
